FAERS Safety Report 9321623 (Version 1)
Quarter: 2013Q2

REPORT INFORMATION
  Report Type: Spontaneous
  Country: BR (occurrence: None)
  Receive Date: 20130529
  Receipt Date: 20130529
  Transmission Date: 20140414
  Serious: Yes (Other)
  Sender: FDA-Public Use
  Company Number: B0894376A

PATIENT
  Age: 41 Year
  Sex: Female

DRUGS (6)
  1. AZATHIOPRINE [Suspect]
     Indication: IMMUNOSUPPRESSION
  2. CYCLOSPORIN [Suspect]
     Indication: IMMUNOSUPPRESSION
  3. CEPHALEXIN [Suspect]
     Indication: URINARY TRACT INFECTION
  4. NITROFURANTOIN [Suspect]
     Indication: URINARY TRACT INFECTION
  5. CEFUROXIME SODIUM [Suspect]
     Indication: URINARY TRACT INFECTION
  6. BETAMETHASONE [Suspect]
     Indication: PRENATAL CARE

REACTIONS (4)
  - Culture urine positive [None]
  - Escherichia infection [None]
  - Foetal growth restriction [None]
  - Exposure during pregnancy [None]
